FAERS Safety Report 24687284 (Version 1)
Quarter: 2024Q4

REPORT INFORMATION
  Report Type: Spontaneous
  Country: JP (occurrence: JP)
  Receive Date: 20241202
  Receipt Date: 20241202
  Transmission Date: 20250115
  Serious: Yes (Other)
  Sender: PFIZER
  Company Number: JP-PFIZER INC-202400312723

PATIENT
  Age: 65 Year
  Sex: Male

DRUGS (2)
  1. AXITINIB [Suspect]
     Active Substance: AXITINIB
     Indication: Metastatic renal cell carcinoma
  2. AVELUMAB [Concomitant]
     Active Substance: AVELUMAB
     Indication: Metastatic renal cell carcinoma

REACTIONS (1)
  - Primary adrenal insufficiency [Recovering/Resolving]
